FAERS Safety Report 9169669 (Version 2)
Quarter: 2013Q2

REPORT INFORMATION
  Report Type: Spontaneous
  Country: US (occurrence: US)
  Receive Date: 20130318
  Receipt Date: 20130503
  Transmission Date: 20140414
  Serious: Yes (Other)
  Sender: FDA-Public Use
  Company Number: US-PFIZER INC-2013086643

PATIENT
  Sex: 0

DRUGS (3)
  1. TIKOSYN [Suspect]
     Dosage: 250 MCG, 2X/DAY
  2. COUMADIN [Concomitant]
     Dosage: UNK
  3. PLAVIX [Suspect]
     Dosage: UNK

REACTIONS (3)
  - Urinary tract infection fungal [Unknown]
  - Bladder disorder [Unknown]
  - Tinea pedis [Unknown]
